FAERS Safety Report 14603657 (Version 3)
Quarter: 2018Q2

REPORT INFORMATION
  Report Type: Spontaneous
  Country: IT (occurrence: IT)
  Receive Date: 20180306
  Receipt Date: 20180423
  Transmission Date: 20180711
  Serious: Yes (Hospitalization, Other)
  Sender: FDA-Public Use
  Company Number: IT-PFIZER INC-2018088195

PATIENT
  Age: 39 Year
  Sex: Male

DRUGS (4)
  1. FOLINA /00024201/ [Concomitant]
     Active Substance: FOLIC ACID
     Dosage: UNK
  2. CIMZIA [Suspect]
     Active Substance: CERTOLIZUMAB PEGOL
     Indication: PSORIATIC ARTHROPATHY
     Dosage: 200 MG, CYCLIC
     Route: 058
     Dates: start: 20160419
  3. ZYLORIC [Concomitant]
     Active Substance: ALLOPURINOL
     Dosage: UNK
  4. SALAZOPYRIN EN [Suspect]
     Active Substance: SULFASALAZINE
     Indication: PSORIATIC ARTHROPATHY
     Dosage: 1000 MG, 1X/DAY
     Route: 048
     Dates: start: 20151210, end: 20180116

REACTIONS (2)
  - Hypertensive crisis [Recovering/Resolving]
  - Epistaxis [Recovering/Resolving]

NARRATIVE: CASE EVENT DATE: 20180116
